FAERS Safety Report 11812585 (Version 1)
Quarter: 2015Q4

REPORT INFORMATION
  Report Type: Spontaneous
  Country: US (occurrence: US)
  Receive Date: 20151208
  Receipt Date: 20151208
  Transmission Date: 20160305
  Serious: No
  Sender: FDA-Public Use
  Company Number: US-TAKEDA-2015TUS007140

PATIENT
  Sex: Female
  Weight: 64.4 kg

DRUGS (4)
  1. BENTYL [Concomitant]
     Active Substance: DICYCLOMINE HYDROCHLORIDE
     Dosage: 10 MG, UNK
     Dates: start: 20140218
  2. ALIGN [Concomitant]
     Active Substance: BIFIDOBACTERIUM LONGUM SUBSP. INFANTIS
     Dosage: 4 MG, QD
     Dates: start: 20140107
  3. AZASAN [Concomitant]
     Active Substance: AZATHIOPRINE
     Dosage: 75 MG, UNK
     Dates: start: 20150109
  4. ENTYVIO [Suspect]
     Active Substance: VEDOLIZUMAB
     Indication: CROHN^S DISEASE
     Dosage: 300 MG, UNK
     Route: 042
     Dates: start: 20150408, end: 20150520

REACTIONS (3)
  - Rash [Recovered/Resolved]
  - Hypoaesthesia oral [Recovered/Resolved]
  - Gastrointestinal pain [Recovered/Resolved]
